FAERS Safety Report 20581282 (Version 1)
Quarter: 2022Q1

REPORT INFORMATION
  Report Type: Spontaneous
  Country: IN (occurrence: IN)
  Receive Date: 20220311
  Receipt Date: 20220311
  Transmission Date: 20220424
  Serious: Yes (Other)
  Sender: FDA-Public Use
  Company Number: IN-Shilpa Medicare Limited-SML-IN-2022-00198

PATIENT
  Age: 12 Year
  Sex: Male

DRUGS (2)
  1. IMATINIB [Suspect]
     Active Substance: IMATINIB
     Indication: Chronic myeloid leukaemia
  2. HYDROXYUREA [Concomitant]
     Active Substance: HYDROXYUREA
     Indication: Chronic myeloid leukaemia

REACTIONS (7)
  - Skin hypopigmentation [Unknown]
  - Vitamin D deficiency [Unknown]
  - Myalgia [Unknown]
  - Abdominal wall oedema [Unknown]
  - Oedema peripheral [Unknown]
  - Retroperitoneal fibrosis [Unknown]
  - Hydronephrosis [Unknown]
